FAERS Safety Report 15358351 (Version 1)
Quarter: 2018Q3

REPORT INFORMATION
  Report Type: Spontaneous
  Country: FR (occurrence: FR)
  Receive Date: 20180906
  Receipt Date: 20180906
  Transmission Date: 20181010
  Serious: Yes (Death, Congenital Anomaly)
  Sender: FDA-Public Use
  Company Number: FR-JNJFOC-20180844009

PATIENT

DRUGS (1)
  1. REMICADE [Suspect]
     Active Substance: INFLIXIMAB
     Indication: CROHN^S DISEASE
     Route: 042
     Dates: start: 20171211, end: 20180214

REACTIONS (7)
  - Foetal growth restriction [Fatal]
  - Pulmonary hypoplasia [Fatal]
  - Lymphoedema [Fatal]
  - Limb malformation [Fatal]
  - Talipes [Fatal]
  - Pleural effusion [Fatal]
  - Foetal exposure during pregnancy [Recovered/Resolved]
